FAERS Safety Report 5992814-1 (Version None)
Quarter: 2008Q4

REPORT INFORMATION
  Report Type: 
  Country: None (occurrence: None)
  Receive Date: 20081205
  Receipt Date: 20080825
  Transmission Date: 20090506
  Serious: Yes (Other)
  Sender: FDA-Public Use
  Company Number: SPV1-2008-01822

PATIENT
  Age: 9 Year
  Sex: Male
  Weight: 47.6 kg

DRUGS (1)
  1. DAYTRANA [Suspect]
     Indication: ATTENTION DEFICIT/HYPERACTIVITY DISORDER
     Dosage: 15 MG, 1X/DAY:QD, TRANSDERMAL
     Route: 062
     Dates: start: 20080301

REACTIONS (1)
  - CONVULSION [None]
